FAERS Safety Report 25147289 (Version 1)
Quarter: 2025Q2

REPORT INFORMATION
  Report Type: Spontaneous
  Country: FR (occurrence: FR)
  Receive Date: 20250401
  Receipt Date: 20250401
  Transmission Date: 20250716
  Serious: Yes (Life-Threatening, Other)
  Sender: BRISTOL MYERS SQUIBB
  Company Number: None

PATIENT
  Age: 77 Year
  Sex: Male
  Weight: 64 kg

DRUGS (2)
  1. OPDIVO [Suspect]
     Active Substance: NIVOLUMAB
     Indication: Metastatic malignant melanoma
     Route: 042
     Dates: start: 20230405, end: 20230522
  2. YERVOY [Suspect]
     Active Substance: IPILIMUMAB
     Indication: Metastatic malignant melanoma
     Route: 042
     Dates: start: 20230405, end: 20230522

REACTIONS (4)
  - Lung disorder [Recovered/Resolved]
  - Respiratory distress [Recovered/Resolved]
  - Rash maculo-papular [Recovered/Resolved]
  - Immune-mediated hypophysitis [Recovered/Resolved]

NARRATIVE: CASE EVENT DATE: 20230531
